FAERS Safety Report 14684707 (Version 2)
Quarter: 2018Q2

REPORT INFORMATION
  Report Type: Spontaneous
  Country: US (occurrence: US)
  Receive Date: 20180327
  Receipt Date: 20180405
  Transmission Date: 20180711
  Serious: Yes (Other)
  Sender: FDA-Public Use
  Company Number: US-PFIZER INC-2018124232

PATIENT
  Age: 4 Month
  Sex: Female

DRUGS (1)
  1. SULFAMETHOXAZOLE/TRIMETHOPRIM [Suspect]
     Active Substance: SULFAMETHOXAZOLE\TRIMETHOPRIM
     Indication: WOUND INFECTION
     Dosage: UNK

REACTIONS (6)
  - Cholestasis [None]
  - Portal tract inflammation [None]
  - Hepatic failure [Recovering/Resolving]
  - Coagulopathy [None]
  - Hepatic necrosis [None]
  - Drug-induced liver injury [None]
